FAERS Safety Report 17420126 (Version 1)
Quarter: 2020Q1

REPORT INFORMATION
  Report Type: Spontaneous
  Country: ES (occurrence: ES)
  Receive Date: 20200214
  Receipt Date: 20200214
  Transmission Date: 20200409
  Serious: Yes (Life-Threatening, Hospitalization, Other)
  Sender: FDA-Public Use
  Company Number: ES-TEVA-2020-ES-1186598

PATIENT
  Age: 7 Decade
  Sex: Male

DRUGS (3)
  1. VALGANCICLOVIR. [Suspect]
     Active Substance: VALGANCICLOVIR
     Indication: CYTOMEGALOVIRUS INFECTION
     Route: 065
  2. BENDAMUSTINE HYDROCHLORIDE. [Suspect]
     Active Substance: BENDAMUSTINE HYDROCHLORIDE
     Indication: CHRONIC LYMPHOCYTIC LEUKAEMIA
     Route: 042
     Dates: start: 2017
  3. METHOTREXATE. [Concomitant]
     Active Substance: METHOTREXATE
     Indication: RHEUMATOID ARTHRITIS

REACTIONS (9)
  - Cell-mediated cytotoxicity [Recovered/Resolved]
  - Sepsis [Recovered/Resolved]
  - Colitis [Recovered/Resolved]
  - Cytomegalovirus syndrome [Recovered/Resolved]
  - Lymphopenia [Recovered/Resolved]
  - Viral load increased [Recovered/Resolved]
  - General physical health deterioration [Recovered/Resolved]
  - Pneumonitis [Recovered/Resolved]
  - Pneumonia [Recovered/Resolved]
